FAERS Safety Report 6764348-8 (Version None)
Quarter: 2010Q2

REPORT INFORMATION
  Report Type: 
  Country: None (occurrence: None)
  Receive Date: 20100610
  Receipt Date: 20100531
  Transmission Date: 20101027
  Serious: Yes (Other)
  Sender: FDA-Public Use
  Company Number: US-PFIZER INC-2010069957

PATIENT
  Age: 44 Year
  Sex: Male

DRUGS (3)
  1. HEPARIN SODIUM [Suspect]
     Route: 041
  2. ACETYLSALICYLIC ACID [Concomitant]
     Indication: GRAFT COMPLICATION
  3. LOVENOX [Concomitant]
     Indication: PROPHYLACTIC CHEMOTHERAPY

REACTIONS (3)
  - HEPARIN-INDUCED THROMBOCYTOPENIA [None]
  - MUSCLE NECROSIS [None]
  - SKIN GRAFT FAILURE [None]
